FAERS Safety Report 7437764-9 (Version None)
Quarter: 2011Q2

REPORT INFORMATION
  Report Type: 
  Country: None (occurrence: None)
  Receive Date: 20110426
  Receipt Date: 20110419
  Transmission Date: 20111010
  Serious: Yes (Hospitalization)
  Sender: FDA-Public Use
  Company Number: FR-PFIZER INC-2011085199

PATIENT
  Age: 57 Year
  Sex: Male

DRUGS (6)
  1. KARDEGIC [Suspect]
     Dosage: 75 MG, 1X/DAY
     Route: 048
     Dates: start: 20090101, end: 20110206
  2. TAHOR [Suspect]
     Indication: HYPERCHOLESTEROLAEMIA
     Dosage: 40 MG, 1X/DAY
     Route: 048
     Dates: start: 20090101
  3. KARDEGIC [Suspect]
     Dosage: 75 MG, 1X/DAY
     Dates: start: 20110209
  4. TAHOR [Suspect]
     Dosage: 80 MG, 1X/DAY
     Dates: start: 20110207, end: 20110217
  5. TAHOR [Suspect]
     Dosage: 40 MG, 1X/DAY
     Dates: start: 20110218
  6. PLAVIX [Suspect]
     Dosage: 75 MG, 1X/DAY
     Route: 048
     Dates: start: 20090101, end: 20110206

REACTIONS (4)
  - MOTOR DYSFUNCTION [None]
  - HYPERTENSION [None]
  - ATAXIA [None]
  - CEREBRAL HAEMATOMA [None]
